FAERS Safety Report 16264976 (Version 1)
Quarter: 2019Q2

REPORT INFORMATION
  Report Type: Spontaneous
  Country: US (occurrence: US)
  Receive Date: 20190501
  Receipt Date: 20190501
  Transmission Date: 20190711
  Serious: No
  Sender: FDA-Public Use
  Company Number: None

PATIENT

DRUGS (1)
  1. BUPRENORPHINE PATCH [Suspect]
     Active Substance: BUPRENORPHINE

REACTIONS (5)
  - Device adhesion issue [None]
  - Urticaria [None]
  - Drug ineffective [None]
  - Application site discomfort [None]
  - Application site pain [None]
